FAERS Safety Report 15280632 (Version 1)
Quarter: 2018Q3

REPORT INFORMATION
  Report Type: Spontaneous
  Country: US (occurrence: US)
  Receive Date: 20180815
  Receipt Date: 20180815
  Transmission Date: 20181010
  Serious: Yes (Other)
  Sender: FDA-Public Use
  Company Number: US-AVADEL LEGACY PHARMACEUTICALS, LLC-2018AVA00239

PATIENT
  Age: 71 Year
  Sex: Male
  Weight: 117.91 kg

DRUGS (9)
  1. NOCTIVA [Suspect]
     Active Substance: DESMOPRESSIN ACETATE
     Indication: PROSTATOMEGALY
     Dosage: 0.83 ?G IN EITHER LEFT OR RIGHT NOSTRIL, 1X/DAY APPROXIMATELY 30 MINUTES BEFORE BEDTIME
     Route: 045
     Dates: start: 20180718, end: 20180720
  2. SIMVASTATIN. [Concomitant]
     Active Substance: SIMVASTATIN
  3. VITAMIN D [Concomitant]
     Active Substance: CHOLECALCIFEROL
  4. TWO UNKNOWN MEDICATIONS FOR PROSTATE [Concomitant]
  5. ASPIRIN LOW DOSE [Concomitant]
     Active Substance: ASPIRIN
  6. OMEPRAZOLE. [Concomitant]
     Active Substance: OMEPRAZOLE
  7. LEVOTHYROXINE. [Concomitant]
     Active Substance: LEVOTHYROXINE
  8. FLONASE [Concomitant]
     Active Substance: FLUTICASONE PROPIONATE
  9. UNKNOWN MEDICATION FOR HIGH BLOOD PRESSURE [Concomitant]

REACTIONS (4)
  - Off label use [Recovered/Resolved]
  - Dysphonia [Recovered/Resolved]
  - Drug ineffective [Recovered/Resolved]
  - Throat tightness [Recovered/Resolved]

NARRATIVE: CASE EVENT DATE: 20180718
